FAERS Safety Report 7653350-X (Version None)
Quarter: 2011Q3

REPORT INFORMATION
  Report Type: 
  Country: None (occurrence: None)
  Receive Date: 20110722
  Receipt Date: 20110418
  Transmission Date: 20111222
  Serious: Yes (Hospitalization)
  Sender: FDA-Public Use
  Company Number: UTC-006416

PATIENT
  Age: 43 Year
  Sex: Male
  Weight: 120.5 kg

DRUGS (4)
  1. TRACLEER [Concomitant]
  2. DIURETICS (DIURETICS) [Concomitant]
  3. REMODULIN [Suspect]
     Dosage: 86.4 UG/KG (0.06 UG/KG,1 IN 1 MIN),INTRAVENOUS
     Route: 042
     Dates: start: 20060905
  4. COUMADIN [Concomitant]

REACTIONS (5)
  - ARRHYTHMIA [None]
  - CHEST PAIN [None]
  - DEVICE FAILURE [None]
  - FEELING ABNORMAL [None]
  - DYSPNOEA [None]
